FAERS Safety Report 12051382 (Version 1)
Quarter: 2016Q1

REPORT INFORMATION
  Report Type: Report from Study
  Country: US (occurrence: US)
  Receive Date: 20160209
  Receipt Date: 20160209
  Transmission Date: 20160526
  Serious: Yes (Hospitalization, Other)
  Sender: FDA-Public Use
  Company Number: US-ABBVIE-15P-163-1440300-00

PATIENT
  Age: 14 Year
  Sex: Female
  Weight: 44.95 kg

DRUGS (1)
  1. HUMIRA [Suspect]
     Active Substance: ADALIMUMAB
     Indication: COLITIS ULCERATIVE
     Dosage: ONE SYRINGE
     Route: 065
     Dates: start: 20130701, end: 20130901

REACTIONS (6)
  - Pouchitis [Recovering/Resolving]
  - Haematochezia [Recovering/Resolving]
  - Crohn^s disease [Not Recovered/Not Resolved]
  - Colitis ulcerative [Recovering/Resolving]
  - Abdominal pain [Recovering/Resolving]
  - Drug ineffective [Not Recovered/Not Resolved]

NARRATIVE: CASE EVENT DATE: 2013
